FAERS Safety Report 16795099 (Version 1)
Quarter: 2019Q3

REPORT INFORMATION
  Report Type: Spontaneous
  Country: US (occurrence: US)
  Receive Date: 20190911
  Receipt Date: 20190911
  Transmission Date: 20191005
  Serious: No
  Sender: FDA-Public Use
  Company Number: US-PFIZER INC-2019367790

PATIENT
  Age: 68 Year
  Sex: Female
  Weight: 92.99 kg

DRUGS (2)
  1. WELLBUTRIN [Concomitant]
     Active Substance: BUPROPION HYDROCHLORIDE
     Indication: DEPRESSION
     Dosage: 150 MG OR 300 MG DAILY
  2. LYRICA [Suspect]
     Active Substance: PREGABALIN
     Indication: FIBROMYALGIA
     Dosage: 150 MG, 3X/DAY (ONE CAPSULE THREE TIMES A DAY)
     Route: 048
     Dates: start: 2009

REACTIONS (2)
  - Withdrawal syndrome [Unknown]
  - Product prescribing error [Unknown]
